FAERS Safety Report 5070782-7 (Version None)
Quarter: 2006Q3

REPORT INFORMATION
  Report Type: 
  Country: None (occurrence: None)
  Receive Date: 20060804
  Receipt Date: 20060404
  Transmission Date: 20061208
  Serious: No
  Sender: FDA-Public Use
  Company Number: US-GLAXOSMITHKLINE-A0600269A

PATIENT
  Age: 67 Year

DRUGS (2)
  1. NICORETTE (MINT) [Suspect]
  2. NICORETTE [Suspect]

REACTIONS (3)
  - INTENTIONAL DRUG MISUSE [None]
  - SALIVARY HYPERSECRETION [None]
  - TOOTHACHE [None]
